FAERS Safety Report 9418697 (Version 2)
Quarter: 2013Q3

REPORT INFORMATION
  Report Type: Spontaneous
  Country: None (occurrence: US)
  Receive Date: 20130725
  Receipt Date: 20130805
  Transmission Date: 20140515
  Serious: Yes (Other)
  Sender: FDA-Public Use
  Company Number: US-ACCORD-018684

PATIENT
  Age: 71 Year
  Sex: Female

DRUGS (8)
  1. GEMCITABINE [Suspect]
     Indication: METASTASES TO LUNG
     Dates: start: 201011
  2. CALCIUM W/COLECALCIFEROL [Concomitant]
     Dosage: STARTED ATLEAST 6 MONTH BEFORE EXANTHEM ONSET
  3. FLUOXETINE HYDROCHLORIDE [Concomitant]
     Dosage: STARTED ATLEAST 6 MONTH BEFORE EXANTHEM ONSET
  4. LEVOTHYROXINE SODIUM [Concomitant]
     Dosage: STARTED ATLEAST 6 MONTH BEFORE EXANTHEM ONSET
  5. FUROSEMIDE [Concomitant]
     Dosage: STARTED ATLEAST 6 MONTH BEFORE EXANTHEM ONSET
  6. ZOLPIDEM TARTRATE [Concomitant]
     Dosage: STARTED ATLEAST 6 MONTH BEFORE EXANTHEM ONSET
  7. GABAPENTIN [Concomitant]
     Dosage: STARTED ATLEAST 6 MONTH BEFORE EXANTHEM ONSET
  8. ASPIRIN [Concomitant]
     Dosage: STARTED ATLEAST 6 MONTH BEFORE EXANTHEM ONSET

REACTIONS (1)
  - Subacute cutaneous lupus erythematosus [Recovered/Resolved]
